FAERS Safety Report 5507896-0 (Version None)
Quarter: 2007Q4

REPORT INFORMATION
  Report Type: 
  Country: None (occurrence: None)
  Receive Date: 20071106
  Receipt Date: 20071026
  Transmission Date: 20080405
  Serious: Yes (Hospitalization, Other)
  Sender: FDA-Public Use
  Company Number: JP-ROCHE-466896

PATIENT
  Age: 41 Year
  Sex: Male

DRUGS (15)
  1. VALIXA [Suspect]
     Indication: CYTOMEGALOVIRUS CHORIORETINITIS
     Route: 048
     Dates: start: 20060119, end: 20060125
  2. VALIXA [Suspect]
     Route: 048
     Dates: start: 20060126, end: 20060308
  3. VALIXA [Suspect]
     Route: 048
     Dates: start: 20060502, end: 20060522
  4. VALIXA [Suspect]
     Route: 048
     Dates: start: 20060712, end: 20060725
  5. RETROVIR [Suspect]
     Indication: HIV INFECTION
     Route: 048
     Dates: start: 20051226, end: 20060124
  6. EPIVIR [Concomitant]
     Indication: HIV INFECTION
     Route: 048
     Dates: start: 20051226, end: 20060807
  7. LEXIVA [Concomitant]
     Indication: HIV INFECTION
     Route: 048
     Dates: start: 20051226, end: 20060807
  8. ZERIT [Concomitant]
     Indication: HIV INFECTION
     Dosage: GENERIC NAME REPORTED AS SANILVUDINE.
     Route: 048
     Dates: start: 20060125, end: 20060807
  9. BAKTAR [Concomitant]
     Route: 048
     Dates: start: 20060105, end: 20060807
  10. DIFLUCAN [Concomitant]
     Dates: start: 20051226, end: 20060111
  11. BICILLIN [Concomitant]
     Route: 048
     Dates: start: 20051208, end: 20060104
  12. STOCRIN [Concomitant]
     Route: 048
     Dates: start: 20060808, end: 20070218
  13. STOCRIN [Concomitant]
     Route: 048
     Dates: start: 20070219
  14. EPZICOM [Concomitant]
     Route: 048
     Dates: start: 20060808
  15. CHEMOTHERAPY DRUG [Concomitant]
     Dosage: DRUG REPORTED: CHEMOTHERAPEUTICS
     Route: 048

REACTIONS (5)
  - BONE MARROW FAILURE [None]
  - CYTOMEGALOVIRUS CHORIORETINITIS [None]
  - HERPES ZOSTER [None]
  - IMMUNE RECONSTITUTION SYNDROME [None]
  - RASH [None]
